FAERS Safety Report 16469720 (Version 1)
Quarter: 2019Q2

REPORT INFORMATION
  Report Type: Spontaneous
  Country: BG (occurrence: BG)
  Receive Date: 20190624
  Receipt Date: 20190624
  Transmission Date: 20190711
  Serious: Yes (Death)
  Sender: FDA-Public Use
  Company Number: PHHY2019BG139581

PATIENT
  Age: 73 Year

DRUGS (2)
  1. DEXAMETHASONE. [Suspect]
     Active Substance: DEXAMETHASONE
     Indication: ANTIINFLAMMATORY THERAPY
     Route: 065
  2. MANNITOL. [Suspect]
     Active Substance: MANNITOL
     Indication: ANTIINFLAMMATORY THERAPY
     Route: 065

REACTIONS (3)
  - Fatigue [Fatal]
  - Brain oedema [Fatal]
  - Drug ineffective [Fatal]
